FAERS Safety Report 6486814-5 (Version None)
Quarter: 2009Q4

REPORT INFORMATION
  Report Type: 
  Country: None (occurrence: None)
  Receive Date: 20091210
  Receipt Date: 20091130
  Transmission Date: 20100525
  Serious: Yes (Disabling)
  Sender: FDA-Public Use
  Company Number: CA-JNJFOC-20091200603

PATIENT
  Sex: Male
  Weight: 75 kg

DRUGS (8)
  1. REMICADE [Suspect]
     Route: 042
     Dates: start: 20080501, end: 20091130
  2. REMICADE [Suspect]
     Indication: PSORIASIS
     Route: 042
     Dates: start: 20080501, end: 20091130
  3. TIMOLOL [Concomitant]
     Dosage: AS NEEDED
     Route: 047
  4. COSOPT [Concomitant]
     Dosage: PRN
     Route: 047
  5. NAPROSYN CR [Concomitant]
     Dosage: PRN
  6. MUCINEX [Concomitant]
  7. OXYCODONE HCL [Concomitant]
     Dosage: PRN AND HS
  8. OXYCODONE HCL [Concomitant]
     Dosage: PRN

REACTIONS (2)
  - HERPES ZOSTER [None]
  - TOOTH ABSCESS [None]
